FAERS Safety Report 5432162-1 (Version None)
Quarter: 2007Q3

REPORT INFORMATION
  Report Type: 
  Country: None (occurrence: None)
  Receive Date: 20070830
  Receipt Date: 20070822
  Transmission Date: 20080115
  Serious: Yes (Hospitalization)
  Sender: FDA-Public Use
  Company Number: FR-MERCK-0708USA04809

PATIENT
  Age: 74 Year
  Sex: Female

DRUGS (4)
  1. MODURETIC 5-50 [Suspect]
     Indication: ESSENTIAL HYPERTENSION
     Route: 048
     Dates: end: 20040511
  2. VIOXX [Suspect]
     Route: 048
     Dates: start: 20040426, end: 20040506
  3. CARDENSIEL [Suspect]
     Indication: CARDIAC FAILURE CONGESTIVE
     Route: 065
     Dates: start: 20040115, end: 20040506
  4. FLECAINIDE ACETATE [Suspect]
     Indication: EXTRASYSTOLES
     Route: 065
     Dates: start: 19970215, end: 20040506

REACTIONS (4)
  - BLOOD CREATINE INCREASED [None]
  - DIZZINESS [None]
  - HYPERTENSION [None]
  - SINUS BRADYCARDIA [None]
